FAERS Safety Report 25876398 (Version 5)
Quarter: 2025Q4

REPORT INFORMATION
  Report Type: Report from Study
  Country: US (occurrence: US)
  Receive Date: 20251003
  Receipt Date: 20251216
  Transmission Date: 20260117
  Serious: No
  Sender: MALLINCKRODT
  Company Number: US-MALLINCKRODT-MNK202505775

PATIENT
  Age: 71 Year
  Sex: Female
  Weight: 200 kg

DRUGS (14)
  1. CORTICOTROPIN [Suspect]
     Active Substance: CORTICOTROPIN
     Indication: Sarcoidosis
     Dosage: 80 UNITS
     Route: 058
     Dates: start: 20250912
  2. PREDNISONE [Concomitant]
     Active Substance: PREDNISONE
     Dosage: UNKNOWN
  3. TRELEGY ELLIPTA [Concomitant]
     Active Substance: FLUTICASONE FUROATE\UMECLIDINIUM BROMIDE\VILANTEROL TRIFENATATE
     Dosage: UNKNOWN
  4. LEVOTHYROXINE [Concomitant]
     Active Substance: LEVOTHYROXINE
     Dosage: UNKNOWN
  5. LOSARTAN [Concomitant]
     Active Substance: LOSARTAN
     Dosage: UNKNOWN
  6. POTASSIUM [Concomitant]
     Active Substance: POTASSIUM
     Dosage: UNKNOWN
  7. ZIPRASIDONE [Concomitant]
     Active Substance: ZIPRASIDONE
     Dosage: UNKNOWN
  8. LORAZEPAM [Concomitant]
     Active Substance: LORAZEPAM
     Dosage: UNKNOWN
  9. FLUTICASONE FUROATE\SALMETEROL XINAFOATE [Concomitant]
     Active Substance: FLUTICASONE FUROATE\SALMETEROL XINAFOATE
     Dosage: UNKNOWN
  10. ALBUTEROL SULFATE [Concomitant]
     Active Substance: ALBUTEROL SULFATE
     Dosage: UNKNOWN
  11. VITAMIN B12 [Concomitant]
     Active Substance: CYANOCOBALAMIN
     Dosage: UNKNOWN
  12. TIZANIDINE [Concomitant]
     Active Substance: TIZANIDINE
     Dosage: UNKNOWN
  13. HYDROCHLOROTHIAZIDE [Concomitant]
     Active Substance: HYDROCHLOROTHIAZIDE
     Dosage: UNKNOWN
  14. EZETIMIBE [Concomitant]
     Active Substance: EZETIMIBE
     Dosage: UNKNOWN

REACTIONS (8)
  - Agitation [Unknown]
  - Arthralgia [Unknown]
  - Ill-defined disorder [Unknown]
  - Pain in extremity [Unknown]
  - Depressed mood [Recovering/Resolving]
  - Injection site pruritus [Recovering/Resolving]
  - Injection site pain [Not Recovered/Not Resolved]
  - Weight increased [Unknown]

NARRATIVE: CASE EVENT DATE: 20250101
